FAERS Safety Report 5332415-1 (Version None)
Quarter: 2007Q2

REPORT INFORMATION
  Report Type: 
  Country: None (occurrence: None)
  Receive Date: 20070306
  Receipt Date: 20060417
  Transmission Date: 20071010
  Serious: Yes (Other)
  Sender: FDA-Public Use
  Company Number: A03200602426

PATIENT
  Age: 83 Year
  Sex: Female
  Weight: 73.92 kg

DRUGS (5)
  1. PLAVIX [Suspect]
     Indication: CORONARY ARTERIAL STENT INSERTION
     Dosage: 75 MG QD - ORAL
     Route: 048
     Dates: start: 20060401, end: 20060101
  2. ATENOLOL [Concomitant]
  3. LISINOPRIL [Concomitant]
  4. HYDROCHLOROTHIAZIDE [Concomitant]
  5. ACETYLSALICYLIC ACID SRT [Concomitant]

REACTIONS (7)
  - ASTHENIA [None]
  - DISTURBANCE IN ATTENTION [None]
  - EPISTAXIS [None]
  - HALLUCINATION, AUDITORY [None]
  - HEADACHE [None]
  - HYPOAESTHESIA [None]
  - SWELLING [None]
